FAERS Safety Report 26140001 (Version 1)
Quarter: 2025Q4

REPORT INFORMATION
  Report Type: Spontaneous
  Country: US (occurrence: US)
  Receive Date: 20251210
  Receipt Date: 20251210
  Transmission Date: 20260118
  Serious: Yes (Other)
  Sender: REGENERON
  Company Number: US-REGENERON PHARMACEUTICALS, INC.-2025-193051

PATIENT
  Sex: Male

DRUGS (1)
  1. LYNOZYFIC [Suspect]
     Active Substance: LINVOSELTAMAB-GCPT
     Indication: Product used for unknown indication
     Dosage: UNK
     Route: 042

REACTIONS (2)
  - Hypertensive urgency [Unknown]
  - Cytokine release syndrome [Unknown]
